FAERS Safety Report 14670624 (Version 2)
Quarter: 2018Q1

REPORT INFORMATION
  Report Type: Spontaneous
  Country: MT (occurrence: MT)
  Receive Date: 20180322
  Receipt Date: 20180330
  Transmission Date: 20180509
  Serious: Yes (Hospitalization)
  Sender: FDA-Public Use
  Company Number: MT-VALIDUS PHARMACEUTICALS LLC-MT-2018VAL000552

PATIENT
  Age: 56 Year
  Sex: Female

DRUGS (5)
  1. ENTRESTO [Suspect]
     Active Substance: SACUBITRIL\VALSARTAN
     Indication: CARDIAC FAILURE CONGESTIVE
     Dosage: 200 MG, BID
     Route: 065
     Dates: start: 20151207
  2. CARVEDILOL. [Suspect]
     Active Substance: CARVEDILOL
     Dosage: 3.125 MG, BID
     Route: 065
  3. FUROSEMIDE. [Suspect]
     Active Substance: FUROSEMIDE
     Indication: CARDIAC FAILURE CONGESTIVE
     Dosage: 40 MG, QD
     Route: 065
     Dates: start: 20140907, end: 20180119
  4. ENTRESTO [Suspect]
     Active Substance: SACUBITRIL\VALSARTAN
     Dosage: 100 MG, UNK
     Route: 065
  5. CARVEDILOL. [Suspect]
     Active Substance: CARVEDILOL
     Indication: CARDIAC FAILURE CONGESTIVE
     Dosage: 25 MG, BID
     Route: 065
     Dates: start: 20140929

REACTIONS (1)
  - Fluid retention [Not Recovered/Not Resolved]

NARRATIVE: CASE EVENT DATE: 20180220
